FAERS Safety Report 9579202 (Version 2)
Quarter: 2013Q4

REPORT INFORMATION
  Report Type: Spontaneous
  Country: US (occurrence: US)
  Receive Date: 20131001
  Receipt Date: 20131001
  Transmission Date: 20140711
  Serious: No
  Sender: FDA-Public Use
  Company Number: US-AMGEN-USASP2013015409

PATIENT
  Age: 58 Year
  Sex: Female
  Weight: 58.05 kg

DRUGS (6)
  1. ENBREL [Suspect]
     Dosage: 50 MG, QWK
     Route: 058
     Dates: start: 20130209
  2. METOPROLOL [Concomitant]
     Dosage: 200 MG, ER
  3. LASIX                              /00032601/ [Concomitant]
     Dosage: 20 MG, UNK
  4. VICODIN [Concomitant]
     Dosage: 5-500 MG, UNK
  5. FLEXERIL                           /00428402/ [Concomitant]
     Dosage: 5 MG, UNK
  6. MELOXICAM [Concomitant]
     Dosage: 7.5 MG, UNK

REACTIONS (4)
  - Injection site rash [Unknown]
  - Injection site vesicles [Unknown]
  - Injection site erythema [Not Recovered/Not Resolved]
  - Injection site pain [Not Recovered/Not Resolved]
